FAERS Safety Report 5166553-3 (Version None)
Quarter: 2006Q4

REPORT INFORMATION
  Report Type: 
  Country: None (occurrence: None)
  Receive Date: 20061130
  Receipt Date: 20061130
  Transmission Date: 20070319
  Serious: Yes (Other)
  Sender: FDA-Public Use
  Company Number: None

PATIENT
  Age: 57 Year
  Sex: Male
  Weight: 68.0396 kg

DRUGS (2)
  1. OMNICEF [Suspect]
     Indication: ABSCESS
     Dosage: 300 MG TWICE A DAY PO
     Route: 048
     Dates: start: 20060822, end: 20060825
  2. OMNICEF [Suspect]
     Indication: CYST
     Dosage: 300 MG TWICE A DAY PO
     Route: 048
     Dates: start: 20060822, end: 20060825

REACTIONS (2)
  - MYOGLOBINURIA [None]
  - RHABDOMYOLYSIS [None]
